FAERS Safety Report 25246807 (Version 3)
Quarter: 2025Q2

REPORT INFORMATION
  Report Type: Report from Study
  Country: FR (occurrence: FR)
  Receive Date: 20250428
  Receipt Date: 20250507
  Transmission Date: 20250716
  Serious: No
  Sender: SANDOZ
  Company Number: FR-SANDOZ-SDZ2025FR011033

PATIENT
  Age: 13 Year
  Sex: Male

DRUGS (1)
  1. OMNITROPE [Suspect]
     Active Substance: SOMATROPIN
     Indication: Product used for unknown indication
     Dosage: 1.6 MG, QD 7D/7 (SUREPAL 15),1,6MG/J 7J/7
     Route: 058
     Dates: start: 20250118

REACTIONS (7)
  - Exposure via skin contact [Unknown]
  - Product dose omission in error [Unknown]
  - Product use complaint [Unknown]
  - Wrong technique in device usage process [Unknown]
  - Product physical issue [Unknown]
  - Device mechanical issue [Unknown]
  - Device use error [Unknown]

NARRATIVE: CASE EVENT DATE: 20250215
